FAERS Safety Report 7491144-9 (Version None)
Quarter: 2011Q2

REPORT INFORMATION
  Report Type: 
  Country: None (occurrence: None)
  Receive Date: 20110519
  Receipt Date: 20110511
  Transmission Date: 20111010
  Serious: Yes (Death)
  Sender: FDA-Public Use
  Company Number: FR-ROCHE-777150

PATIENT
  Sex: Male

DRUGS (10)
  1. XELODA [Suspect]
     Route: 048
     Dates: start: 20110318
  2. MITOMYCINE C [Concomitant]
  3. XELODA [Suspect]
     Route: 048
     Dates: start: 20110326, end: 20110408
  4. ASPIRIN [Concomitant]
  5. ATORVASTATIN CALCIUM [Concomitant]
     Dosage: TAHOR 40
  6. MITOMYCINE C [Concomitant]
     Dates: start: 20110415
  7. XELODA [Suspect]
     Dosage: CORRESPOND TO 3500 MG FROM DAY 1 TO DAY 14
     Route: 048
     Dates: start: 20110415, end: 20110425
  8. OMEPRAZOLE [Concomitant]
     Dosage: OMEPREZOLE 20
  9. BISOPROLOL FUMARATE [Concomitant]
  10. XELODA [Suspect]
     Dosage: FREQUENCY: 2-0-2-0
     Route: 048
     Dates: start: 20110226

REACTIONS (1)
  - SEPSIS [None]
